FAERS Safety Report 18687254 (Version 1)
Quarter: 2020Q4

REPORT INFORMATION
  Report Type: Other
  Country: CA (occurrence: CA)
  Receive Date: 20201231
  Receipt Date: 20201231
  Transmission Date: 20210114
  Serious: Yes (Other)
  Sender: FDA-Public Use
  Company Number: CA-APOTEX-2020AP024930

PATIENT
  Sex: Female
  Weight: 3 kg

DRUGS (6)
  1. CITALOPRAM [Suspect]
     Active Substance: CITALOPRAM HYDROBROMIDE
     Indication: EXPOSURE VIA BREAST MILK
     Dosage: 20 MILLIGRAM, QD
     Route: 064
  2. BUPRENORPHINE. [Suspect]
     Active Substance: BUPRENORPHINE
     Dosage: UNK UNK, QD
     Route: 064
  3. OXYCODONE/ACETAMINOPHEN [Suspect]
     Active Substance: ACETAMINOPHEN\OXYCODONE HYDROCHLORIDE
     Indication: EXPOSURE DURING PREGNANCY
     Dosage: UNK
     Route: 064
  4. BUPRENORPHINE. [Suspect]
     Active Substance: BUPRENORPHINE
     Indication: EXPOSURE VIA BREAST MILK
     Dosage: UNK UNK, QD
     Route: 064
  5. BUPRENORPHINE. [Suspect]
     Active Substance: BUPRENORPHINE
     Indication: EXPOSURE DURING PREGNANCY
     Dosage: UNK
     Route: 063
  6. CITALOPRAM [Suspect]
     Active Substance: CITALOPRAM HYDROBROMIDE
     Indication: EXPOSURE DURING PREGNANCY
     Dosage: 20 MILLIGRAM, QD
     Route: 063

REACTIONS (5)
  - Neonatal respiratory distress [Recovered/Resolved]
  - Poor feeding infant [Recovered/Resolved]
  - Drug withdrawal syndrome neonatal [Recovered/Resolved]
  - Pregnancy [Recovered/Resolved]
  - Maternal exposure during breast feeding [Recovered/Resolved]
